FAERS Safety Report 19235479 (Version 2)
Quarter: 2021Q2

REPORT INFORMATION
  Report Type: Spontaneous
  Country: US (occurrence: US)
  Receive Date: 20210510
  Receipt Date: 20210510
  Transmission Date: 20210717
  Serious: No
  Sender: FDA-Public Use
  Company Number: US-TEVA-2021-US-1910892

PATIENT

DRUGS (1)
  1. ALPRAZOLAM ACTAVIS [Suspect]
     Active Substance: ALPRAZOLAM
     Dosage: 1 TABLET BY MOUTH 4 TIMES DAILY
     Route: 048

REACTIONS (4)
  - Product taste abnormal [Unknown]
  - Therapeutic product effect incomplete [Unknown]
  - Product size issue [Unknown]
  - Suspected counterfeit product [Unknown]
